FAERS Safety Report 4535528-7 (Version None)
Quarter: 2004Q4

REPORT INFORMATION
  Report Type: 
  Country: None (occurrence: None)
  Receive Date: 20041214
  Receipt Date: 20040910
  Transmission Date: 20050328
  Serious: No
  Sender: FDA-Public Use
  Company Number: USA040977874

PATIENT
  Age: 72 Year
  Sex: Male
  Weight: 80 kg

DRUGS (3)
  1. CIALIS [Suspect]
     Dosage: 10 MG
     Dates: start: 20040101
  2. HYDROCHLOROTHIAZIDE [Concomitant]
  3. TENORMIN (ATENOLOL EG) [Concomitant]

REACTIONS (1)
  - THERAPEUTIC RESPONSE INCREASED [None]
